FAERS Safety Report 6342657-4 (Version None)
Quarter: 2009Q3

REPORT INFORMATION
  Report Type: 
  Country: None (occurrence: None)
  Receive Date: 20090908
  Receipt Date: 20061114
  Transmission Date: 20100115
  Serious: No
  Sender: FDA-Public Use
  Company Number: JP-ROCHE-472465

PATIENT
  Sex: Female
  Weight: 2.2 kg

DRUGS (4)
  1. OSELTAMIVIR [Suspect]
     Dates: start: 20060308, end: 20060312
  2. PL [Concomitant]
     Dates: start: 20060308, end: 20060312
  3. MUCODYNE [Concomitant]
     Dates: start: 20060308, end: 20060312
  4. BRUFEN [Concomitant]
     Dates: start: 20060308, end: 20060312

REACTIONS (2)
  - DRUG EXPOSURE DURING PREGNANCY [None]
  - NORMAL NEWBORN [None]
